FAERS Safety Report 4313765-4 (Version None)
Quarter: 2004Q1

REPORT INFORMATION
  Report Type: 
  Country: None (occurrence: None)
  Receive Date: 20040305
  Receipt Date: 20040224
  Transmission Date: 20041129
  Serious: Yes (Disabling)
  Sender: FDA-Public Use
  Company Number: HQ0496606FEB2002

PATIENT
  Age: 39 Year
  Sex: Male

DRUGS (4)
  1. DIMETAPP (BROMPHENIRAMINE/PHENYLPROPRANOLAMINE, EXTENTAB) [Suspect]
     Indication: NASAL CONGESTION
     Dosage: 1 TABLET 1X PER 1 DAY
     Dates: start: 19980815, end: 19980801
  2. DIMETAPP (BROMPHENIRAMINE/PHENYLPROPRANOLAMINE, ELIXIR) [Suspect]
     Indication: NASAL CONGESTION
     Dosage: 2-3 TEASPOONS PER DAY, ORAL
     Route: 048
     Dates: start: 19980801
  3. DIMETAPP [Suspect]
     Dosage: ORAL
     Route: 048
     Dates: start: 19980817, end: 19980820
  4. PERCOCET [Concomitant]

REACTIONS (4)
  - EXERCISE CAPACITY DECREASED [None]
  - FATIGUE [None]
  - HAEMORRHAGIC STROKE [None]
  - HEMIPLEGIA [None]
